FAERS Safety Report 25865103 (Version 1)
Quarter: 2025Q3

REPORT INFORMATION
  Report Type: Spontaneous
  Country: EU (occurrence: EU)
  Receive Date: 20250930
  Receipt Date: 20250930
  Transmission Date: 20251020
  Serious: Yes (Life-Threatening)
  Sender: GUERBET
  Company Number: None

PATIENT
  Age: 51 Year
  Sex: Male

DRUGS (11)
  1. IOBITRIDOL [Suspect]
     Active Substance: IOBITRIDOL
     Indication: Scan
     Route: 042
     Dates: start: 20250804, end: 20250804
  2. IOVERSOL [Suspect]
     Active Substance: IOVERSOL
     Indication: Scan
     Route: 042
     Dates: start: 20250805, end: 20250805
  3. AUGMENTIN [Suspect]
     Active Substance: AMOXICILLIN\CLAVULANATE POTASSIUM
     Indication: Pyrexia
     Route: 048
     Dates: start: 20250802, end: 20250805
  4. ACETAMINOPHEN [Concomitant]
     Active Substance: ACETAMINOPHEN
     Indication: Product used for unknown indication
  5. LATANOPROST [Concomitant]
     Active Substance: LATANOPROST
     Indication: Product used for unknown indication
  6. AMINO ACIDS\MINERALS\VITAMINS [Concomitant]
     Active Substance: AMINO ACIDS\MINERALS\VITAMINS
     Indication: Product used for unknown indication
  7. TIXOCORTOL (PIVALATE) [Concomitant]
     Indication: Product used for unknown indication
  8. MUCOMYST [Concomitant]
     Active Substance: ACETYLCYSTEINE
     Indication: Product used for unknown indication
  9. FERVEX [Concomitant]
     Indication: Product used for unknown indication
  10. BICLOTYMOL [Concomitant]
     Active Substance: BICLOTYMOL
     Indication: Product used for unknown indication
  11. VEGEBOM [Concomitant]
     Indication: Product used for unknown indication

REACTIONS (1)
  - Acute generalised exanthematous pustulosis [Recovering/Resolving]

NARRATIVE: CASE EVENT DATE: 20250809
